FAERS Safety Report 9493564 (Version 2)
Quarter: 2013Q3

REPORT INFORMATION
  Report Type: Spontaneous
  Country: US (occurrence: US)
  Receive Date: 20130902
  Receipt Date: 20130905
  Transmission Date: 20140515
  Serious: No
  Sender: FDA-Public Use
  Company Number: US-PFIZER INC-2013250514

PATIENT
  Age: 52 Year
  Sex: Female
  Weight: 58.96 kg

DRUGS (2)
  1. PREMPRO [Suspect]
     Dosage: UNK, DAILY
     Dates: start: 201308
  2. LOESTRIN [Suspect]
     Dosage: UNK
     Dates: end: 201308

REACTIONS (2)
  - Fatigue [Not Recovered/Not Resolved]
  - Insomnia [Not Recovered/Not Resolved]
